FAERS Safety Report 5190268-9 (Version None)
Quarter: 2006Q4

REPORT INFORMATION
  Report Type: 
  Country: None (occurrence: None)
  Receive Date: 20061222
  Receipt Date: 20060821
  Transmission Date: 20070319
  Serious: No
  Sender: FDA-Public Use
  Company Number: US-AMGEN-KDL190618

PATIENT
  Sex: Male

DRUGS (4)
  1. ARANESP [Suspect]
     Indication: RENAL FAILURE CHRONIC
     Route: 058
     Dates: start: 20060501, end: 20060724
  2. AVAPRO [Concomitant]
  3. FOLIC ACID [Concomitant]
  4. CHROMAGEN [Concomitant]

REACTIONS (7)
  - CONFUSIONAL STATE [None]
  - DISORIENTATION [None]
  - FATIGUE [None]
  - HYPOTENSION [None]
  - MUSCULAR WEAKNESS [None]
  - PRESYNCOPE [None]
  - THERAPEUTIC RESPONSE DECREASED [None]
